FAERS Safety Report 11243500 (Version 1)
Quarter: 2015Q3

REPORT INFORMATION
  Report Type: Spontaneous
  Country: US (occurrence: None)
  Receive Date: 20150702
  Receipt Date: 20150702
  Transmission Date: 20151125
  Serious: Yes (Disabling)
  Sender: FDA-Public Use
  Company Number: None

PATIENT
  Age: 53 Year
  Sex: Male
  Weight: 95.26 kg

DRUGS (6)
  1. KLONOPIN [Concomitant]
     Active Substance: CLONAZEPAM
  2. MALOX [Concomitant]
  3. SEROQUEL [Suspect]
     Active Substance: QUETIAPINE FUMARATE
     Indication: SCHIZOAFFECTIVE DISORDER
     Route: 048
     Dates: start: 20150317, end: 20150701
  4. ATENOLOL. [Concomitant]
     Active Substance: ATENOLOL
  5. SEROQUEL [Suspect]
     Active Substance: QUETIAPINE FUMARATE
     Route: 048
     Dates: start: 20150317, end: 20150701
  6. BENADRYL [Concomitant]
     Active Substance: DIPHENHYDRAMINE HYDROCHLORIDE

REACTIONS (9)
  - Heart rate irregular [None]
  - Memory impairment [None]
  - Raynaud^s phenomenon [None]
  - Musculoskeletal pain [None]
  - Confusional state [None]
  - Arthralgia [None]
  - Pain in extremity [None]
  - Thinking abnormal [None]
  - Myalgia [None]

NARRATIVE: CASE EVENT DATE: 20150701
